FAERS Safety Report 6801342-2 (Version None)
Quarter: 2010Q2

REPORT INFORMATION
  Report Type: 
  Country: None (occurrence: None)
  Receive Date: 20100629
  Receipt Date: 20100624
  Transmission Date: 20101027
  Serious: Yes (Other)
  Sender: FDA-Public Use
  Company Number: A0841348A

PATIENT
  Sex: Female

DRUGS (2)
  1. TYKERB [Suspect]
     Dosage: 1250MG PER DAY
     Route: 048
     Dates: start: 20091016
  2. XELODA [Concomitant]

REACTIONS (3)
  - ERYTHEMA [None]
  - METASTASIS [None]
  - PAIN IN EXTREMITY [None]
